FAERS Safety Report 4950552-8 (Version None)
Quarter: 2006Q1

REPORT INFORMATION
  Report Type: 
  Country: None (occurrence: None)
  Receive Date: 20060316
  Receipt Date: 20060301
  Transmission Date: 20060701
  Serious: Yes (Other)
  Sender: FDA-Public Use
  Company Number: JP200603001016

PATIENT
  Age: 71 Year
  Sex: Male

DRUGS (2)
  1. GEMZAR [Suspect]
     Dosage: INTRAVENOUS
     Route: 042
  2. TAXOTERE [Concomitant]

REACTIONS (1)
  - PNEUMONIA [None]
